FAERS Safety Report 8475192 (Version 2)
Quarter: 2013Q2

REPORT INFORMATION
  Report Type: Report from Study
  Country: MX (occurrence: MX)
  Receive Date: 20120324
  Receipt Date: 20130425
  Transmission Date: 20140414
  Serious: Yes (Death)
  Sender: FDA-Public Use
  Company Number: PHHY2012MX024975

PATIENT
  Age: 20 Year
  Sex: Male

DRUGS (1)
  1. TRILEPTAL [Suspect]
     Indication: EPILEPSY
     Dosage: 5 ML PER DAY
     Dates: start: 20111218

REACTIONS (2)
  - Cerebral infarction [Fatal]
  - Convulsion [Unknown]
